FAERS Safety Report 8201541-1 (Version None)
Quarter: 2012Q1

REPORT INFORMATION
  Report Type: 
  Country: None (occurrence: None)
  Receive Date: 20120312
  Receipt Date: 20120305
  Transmission Date: 20120608
  Serious: Yes (Other)
  Sender: FDA-Public Use
  Company Number: JP-GLAXOSMITHKLINE-B0785280A

PATIENT
  Sex: Male

DRUGS (5)
  1. REQUIP [Suspect]
     Dosage: 4.5MG PER DAY
     Route: 048
     Dates: start: 20110801
  2. DROXIDOPA [Concomitant]
     Indication: PARKINSON'S DISEASE
     Route: 048
     Dates: start: 20110801
  3. BENSERAZIDE + LEVODOPA [Concomitant]
     Indication: PARKINSON'S DISEASE
     Route: 048
     Dates: start: 20110801
  4. REQUIP [Suspect]
     Indication: PARKINSON'S DISEASE
     Route: 048
     Dates: start: 20110101
  5. REQUIP [Suspect]
     Route: 048

REACTIONS (1)
  - SUDDEN ONSET OF SLEEP [None]
